FAERS Safety Report 9103945 (Version 1)
Quarter: 2013Q1

REPORT INFORMATION
  Report Type: Spontaneous
  Country: US (occurrence: US)
  Receive Date: 20130219
  Receipt Date: 20130219
  Transmission Date: 20140127
  Serious: No
  Sender: FDA-Public Use
  Company Number: US-PFIZER INC-2013060614

PATIENT
  Age: 81 Year
  Sex: Male
  Weight: 76 kg

DRUGS (4)
  1. RELPAX [Suspect]
     Indication: MIGRAINE
     Dosage: 40 MG, AS NEEDED
  2. EXCEDRIN (ASPIRIN/CAFFEINE/PARACETAMOL) [Suspect]
     Indication: MIGRAINE
     Dosage: UNK
  3. PRILOSEC [Concomitant]
     Indication: DYSPEPSIA
     Dosage: 20 MG, 1X/DAY
  4. PRILOSEC [Concomitant]
     Indication: DYSPEPSIA

REACTIONS (2)
  - Dizziness [Unknown]
  - Drug ineffective [Unknown]
